FAERS Safety Report 7309294-6 (Version None)
Quarter: 2011Q1

REPORT INFORMATION
  Report Type: 
  Country: None (occurrence: None)
  Receive Date: 20110223
  Receipt Date: 20110214
  Transmission Date: 20110831
  Serious: Yes (Other)
  Sender: FDA-Public Use
  Company Number: US-ROCHE-760092

PATIENT
  Sex: Female

DRUGS (2)
  1. XELODA [Suspect]
     Indication: GALLBLADDER CANCER METASTATIC
     Route: 065
  2. GEMZAR [Suspect]
     Indication: GALLBLADDER CANCER METASTATIC
     Route: 065

REACTIONS (2)
  - METASTASES TO THE RESPIRATORY SYSTEM [None]
  - CARBOHYDRATE ANTIGEN 19-9 INCREASED [None]
